FAERS Safety Report 12410729 (Version 3)
Quarter: 2016Q4

REPORT INFORMATION
  Report Type: Spontaneous
  Country: LB (occurrence: LB)
  Receive Date: 20160527
  Receipt Date: 20161007
  Transmission Date: 20170207
  Serious: Yes (Death, Hospitalization, Other)
  Sender: FDA-Public Use
  Company Number: LB-ROCHE-1765169

PATIENT
  Age: 71 Year
  Sex: Female

DRUGS (3)
  1. METHOTREXATE. [Concomitant]
     Active Substance: METHOTREXATE
     Indication: RHEUMATOID ARTHRITIS
     Dosage: AS A 3RD LINE.
     Route: 065
     Dates: start: 2011
  2. MABTHERA [Suspect]
     Active Substance: RITUXIMAB
     Indication: RHEUMATOID ARTHRITIS
     Dosage: AS A 3RD LINE. 2 CURES EVERY 6 MONTHS.?LAST DOSE IN NOV/2015 PRIOR TO ADVERSE EVENT
     Route: 042
     Dates: start: 2011, end: 20160521
  3. EBETREXAT [Concomitant]
     Active Substance: METHOTREXATE SODIUM
     Indication: RHEUMATOID ARTHRITIS
     Dosage: 15 MG/WEEK
     Route: 048
     Dates: start: 20160728

REACTIONS (2)
  - Progressive multifocal leukoencephalopathy [Unknown]
  - Thrombosis [Fatal]

NARRATIVE: CASE EVENT DATE: 20160510
